FAERS Safety Report 16686152 (Version 2)
Quarter: 2020Q3

REPORT INFORMATION
  Report Type: Spontaneous
  Country: US (occurrence: US)
  Receive Date: 20190809
  Receipt Date: 20200819
  Transmission Date: 20201102
  Serious: Yes (Other)
  Sender: FDA-Public Use
  Company Number: US-TEVA-2019-US-1090046

PATIENT
  Age: 66 Year

DRUGS (3)
  1. DIAZEPAM. [Concomitant]
     Active Substance: DIAZEPAM
     Route: 048
  2. INDOMETHACIN HERITAGE [Suspect]
     Active Substance: INDOMETHACIN
     Dosage: 100 MILLIGRAM DAILY;
     Route: 048
  3. HYDROCODONE BITARTRATE AND ACETAMINOPHEN [Concomitant]
     Active Substance: ACETAMINOPHEN\HYDROCODONE BITARTRATE
     Dosage: FORM STRENGTH: 10?325 MG
     Route: 048

REACTIONS (7)
  - Pyrexia [Unknown]
  - Illness [Unknown]
  - Feeling abnormal [Unknown]
  - Near death experience [Unknown]
  - Hypophagia [Unknown]
  - Syncope [Unknown]
  - Gastrointestinal injury [Not Recovered/Not Resolved]
